FAERS Safety Report 8083678 (Version 2)
Quarter: 2014Q3

REPORT INFORMATION
  Report Type: Spontaneous
  Country: FR (occurrence: FR)
  Receive Date: 20110810
  Receipt Date: 20140828
  Transmission Date: 20150326
  Serious: Yes (Death, Life-Threatening, Other)
  Sender: FDA-Public Use
  Company Number: PHHY2011FR68004

PATIENT
  Age: 74 Year
  Sex: Male

DRUGS (6)
  1. LESCOL [Suspect]
     Active Substance: FLUVASTATIN SODIUM
     Dosage: UNK UKN, UNK
  2. GLUCOPHAGE [Suspect]
     Active Substance: METFORMIN HYDROCHLORIDE
     Dosage: UNK UKN, UNK
  3. PLAVIX [Suspect]
     Active Substance: CLOPIDOGREL BISULFATE
     Dosage: UNK UKN, UNK
  4. BIPRETERAX [Suspect]
     Active Substance: INDAPAMIDE\PERINDOPRIL
     Dosage: UNK UKN, UNK
  5. ACTOS [Suspect]
     Active Substance: PIOGLITAZONE HYDROCHLORIDE
     Dosage: 15 MG, QD
     Dates: start: 20071030, end: 20101207
  6. NOVONORM [Suspect]
     Active Substance: REPAGLINIDE
     Dosage: 2 MG, TID

REACTIONS (8)
  - Bladder cancer [Fatal]
  - Bladder disorder [Unknown]
  - Pollakiuria [Unknown]
  - Transitional cell carcinoma [Unknown]
  - Ureteral polyp [Unknown]
  - Dysuria [Unknown]
  - Haematuria [Unknown]
  - Inflammation [Unknown]

NARRATIVE: CASE EVENT DATE: 20110415
